FAERS Safety Report 5663749-9 (Version None)
Quarter: 2008Q1

REPORT INFORMATION
  Report Type: 
  Country: None (occurrence: None)
  Receive Date: 20080311
  Receipt Date: 20080306
  Transmission Date: 20080703
  Serious: Yes (Other)
  Sender: FDA-Public Use
  Company Number: 2008SP002925

PATIENT
  Age: 52 Year
  Sex: Female

DRUGS (10)
  1. PEG-INTRON [Suspect]
     Indication: HEPATITIS C
     Dosage: 80 MCG; QW; SC
     Route: 058
     Dates: start: 20070413
  2. REBETOL [Suspect]
     Indication: HEPATITIS C
     Dosage: 400 MG; BID; PO
     Route: 048
     Dates: start: 20070413
  3. HCV-796 [Suspect]
     Indication: HEPATITIS C
     Dosage: 500 MG; BID; PO
     Route: 048
     Dates: start: 20070413, end: 20070809
  4. GLYBURIDE [Concomitant]
  5. METFORMIN HCL [Concomitant]
  6. TYLENOL EXTRA STRENGTH [Concomitant]
  7. TIMOLOL MALEATE [Concomitant]
  8. LUMIGAN [Concomitant]
  9. ALPHAGAN [Concomitant]
  10. PIROXICAM [Concomitant]

REACTIONS (2)
  - ALANINE AMINOTRANSFERASE INCREASED [None]
  - ASPARTATE AMINOTRANSFERASE INCREASED [None]
